FAERS Safety Report 20610626 (Version 3)
Quarter: 2022Q2

REPORT INFORMATION
  Report Type: Report from Study
  Country: JP (occurrence: JP)
  Receive Date: 20220318
  Receipt Date: 20220531
  Transmission Date: 20220720
  Serious: No
  Sender: FDA-Public Use
  Company Number: JP-TAKEDA-2022TJP008898

PATIENT
  Age: 29 Year
  Sex: Male
  Weight: 110.6 kg

DRUGS (10)
  1. VORTIOXETINE [Suspect]
     Active Substance: VORTIOXETINE
     Indication: Major depression
     Dosage: 10 MILLIGRAM, QD
     Route: 065
     Dates: start: 20211120
  2. VORTIOXETINE [Suspect]
     Active Substance: VORTIOXETINE
     Dosage: 20 MILLIGRAM, QD
     Route: 065
     Dates: start: 20220120, end: 20220510
  3. OMEGA-3-ACID ETHYL ESTERS [Concomitant]
     Active Substance: OMEGA-3-ACID ETHYL ESTERS
     Indication: Lipids abnormal
     Dosage: 2 GRAM, QD
     Route: 048
     Dates: start: 202011
  4. OLMESARTAN MEDOXOMIL [Concomitant]
     Active Substance: OLMESARTAN MEDOXOMIL
     Indication: Hypertension
     Dosage: 40 MILLIGRAM, QD
     Route: 048
     Dates: start: 202011
  5. NIFEDIPINE [Concomitant]
     Active Substance: NIFEDIPINE
     Indication: Hypertension
     Dosage: 40 MILLIGRAM, QD
     Route: 048
     Dates: start: 202011
  6. PEMAFIBRATE [Concomitant]
     Active Substance: PEMAFIBRATE
     Indication: Lipids abnormal
     Dosage: 0.2 MILLIGRAM, BID
     Route: 048
     Dates: start: 202011
  7. CARVEDILOL [Concomitant]
     Active Substance: CARVEDILOL
     Indication: Hypertension
     Dosage: 20 MILLIGRAM, QD
     Route: 048
     Dates: start: 202011
  8. TRIAZOLAM [Concomitant]
     Active Substance: TRIAZOLAM
     Indication: Major depression
     Dosage: 0.25 MILLIGRAM, QD
     Route: 048
     Dates: start: 20211113, end: 20211212
  9. ESZOPICLONE [Concomitant]
     Active Substance: ESZOPICLONE
     Indication: Major depression
     Dosage: 1 MILLIGRAM, QD
     Route: 048
     Dates: start: 20211223
  10. SEMAGLUTIDE [Concomitant]
     Active Substance: SEMAGLUTIDE
     Indication: Type 2 diabetes mellitus
     Dosage: 7 MILLIGRAM, QD
     Route: 048
     Dates: start: 20211218

REACTIONS (2)
  - Nausea [Recovered/Resolved]
  - Nasopharyngitis [Recovered/Resolved]

NARRATIVE: CASE EVENT DATE: 20211203
